FAERS Safety Report 8179953 (Version 5)
Quarter: 2017Q2

REPORT INFORMATION
  Report Type: Spontaneous
  Country: FR (occurrence: FR)
  Receive Date: 20111013
  Receipt Date: 20170628
  Transmission Date: 20170830
  Serious: Yes (Life-Threatening, Hospitalization, Other)
  Sender: FDA-Public Use
  Company Number: FR-ELI_LILLY_AND_COMPANY-FR201109008231

PATIENT
  Age: 41 Year
  Sex: Female
  Weight: 37 kg

DRUGS (12)
  1. SERESTA [Concomitant]
     Active Substance: OXAZEPAM
     Indication: PRODUCT USED FOR UNKNOWN INDICATION
     Dosage: UNK
     Dates: start: 20110430, end: 20110606
  2. DEPAKOTE [Concomitant]
     Active Substance: DIVALPROEX SODIUM
     Dosage: 500 MG, UNK
     Route: 048
     Dates: start: 20110622, end: 20110627
  3. IMOVANE [Concomitant]
     Active Substance: ZOPICLONE
     Indication: PRODUCT USED FOR UNKNOWN INDICATION
     Dosage: UNK
     Dates: start: 20110606
  4. THERALITE [Concomitant]
     Active Substance: LITHIUM CARBONATE
     Indication: PRODUCT USED FOR UNKNOWN INDICATION
     Dosage: 250 MG, UNK
     Route: 048
     Dates: start: 20110606, end: 20110703
  5. TERCIAN                            /00759301/ [Concomitant]
     Active Substance: CYAMEMAZINE
     Dosage: UNK
     Dates: start: 20110811, end: 20110816
  6. RISPERDAL [Concomitant]
     Active Substance: RISPERIDONE
     Indication: PRODUCT USED FOR UNKNOWN INDICATION
     Dosage: UNK
     Dates: start: 20110606, end: 20110620
  7. DEPAKOTE [Concomitant]
     Active Substance: DIVALPROEX SODIUM
     Indication: PRODUCT USED FOR UNKNOWN INDICATION
     Dosage: 500 MG, UNK
     Route: 048
     Dates: start: 20110430, end: 20110606
  8. ZYPREXA [Suspect]
     Active Substance: OLANZAPINE
     Indication: PRODUCT USED FOR UNKNOWN INDICATION
     Dosage: 20 MG, UNK
     Route: 048
     Dates: start: 20110430, end: 20110606
  9. PARKINANE [Concomitant]
     Active Substance: TRIHEXYPHENIDYL HYDROCHLORIDE
     Indication: PRODUCT USED FOR UNKNOWN INDICATION
     Dosage: 5 MG, UNK
     Dates: start: 20110615, end: 20110704
  10. ZYPREXA [Suspect]
     Active Substance: OLANZAPINE
     Dosage: 20 MG, UNK
     Route: 048
     Dates: start: 20110620, end: 20110704
  11. TERCIAN                            /00759301/ [Concomitant]
     Active Substance: CYAMEMAZINE
     Indication: PRODUCT USED FOR UNKNOWN INDICATION
     Dosage: UNK
     Dates: start: 20110606, end: 20110630
  12. HALDOL [Concomitant]
     Active Substance: HALOPERIDOL
     Indication: PRODUCT USED FOR UNKNOWN INDICATION
     Dosage: UNK
     Dates: start: 20110620, end: 20110630

REACTIONS (27)
  - Septic shock [Recovering/Resolving]
  - Sleep disorder [Unknown]
  - Visual acuity reduced [Unknown]
  - Ventricular fibrillation [Recovering/Resolving]
  - Circulatory collapse [Recovering/Resolving]
  - Pancytopenia [Recovering/Resolving]
  - Pigmentation disorder [Unknown]
  - Depressive delusion [Unknown]
  - Drug reaction with eosinophilia and systemic symptoms [Recovered/Resolved]
  - Acute hepatic failure [Unknown]
  - Major depression [Unknown]
  - Weight decreased [Recovering/Resolving]
  - Asthenia [Unknown]
  - Dry skin [Unknown]
  - Agranulocytosis [Unknown]
  - Hepatocellular injury [Recovering/Resolving]
  - Eschar [Recovering/Resolving]
  - Dry eye [Unknown]
  - Adrenal insufficiency [Recovering/Resolving]
  - Alopecia universalis [Recovering/Resolving]
  - Onycholysis [Recovering/Resolving]
  - Dysgeusia [Unknown]
  - Nightmare [Unknown]
  - Dry mouth [Unknown]
  - Cholestasis [Recovering/Resolving]
  - Pruritus [Unknown]
  - Toxic epidermal necrolysis [Recovering/Resolving]

NARRATIVE: CASE EVENT DATE: 20110606
